FAERS Safety Report 17158392 (Version 1)
Quarter: 2019Q4

REPORT INFORMATION
  Report Type: Spontaneous
  Country: US (occurrence: US)
  Receive Date: 20191213
  Receipt Date: 20191213
  Transmission Date: 20200122
  Serious: Yes (Hospitalization)
  Sender: FDA-Public Use
  Company Number: None

PATIENT
  Age: 67 Year
  Sex: Male
  Weight: 154.5 kg

DRUGS (12)
  1. TAMSULOSIN 0.4MG DAILY [Concomitant]
  2. DIGOXIN 125MCG TID [Concomitant]
  3. PRAVASTATIN 20MG DAILY [Concomitant]
  4. MINOCYCLINE 100MG BID [Concomitant]
  5. FLUTICASONE 50MCG 2 SPRAYS DAILY [Concomitant]
  6. GABAPENTIN 300MG TID [Concomitant]
  7. LISINOPRIL 10MG DAILY [Concomitant]
  8. RIVAROXABAN [Suspect]
     Active Substance: RIVAROXABAN
     Indication: ATRIAL FIBRILLATION
     Route: 048
     Dates: start: 20150325
  9. METOLAZONE 5MG DAILY [Concomitant]
  10. METFORMIN 1000MG BID [Concomitant]
  11. BUMETANIDE 2MG BID [Concomitant]
  12. METOPROLOL SUCCINATE 200MG DAILY [Concomitant]

REACTIONS (3)
  - Ulcer haemorrhage [None]
  - Gastrointestinal haemorrhage [None]
  - Skin ulcer [None]

NARRATIVE: CASE EVENT DATE: 20151006
